FAERS Safety Report 5599932-0 (Version None)
Quarter: 2007Q4

REPORT INFORMATION
  Report Type: 
  Country: None (occurrence: None)
  Receive Date: 20071226
  Receipt Date: 20070119
  Transmission Date: 20080405
  Serious: Yes (Other)
  Sender: FDA-Public Use
  Company Number: 224400

PATIENT
  Age: 52 Year
  Sex: Female

DRUGS (1)
  1. RAPTIVA [Suspect]
     Indication: PSORIASIS
     Dates: start: 20060412

REACTIONS (2)
  - HEPATIC ENZYME INCREASED [None]
  - PLATELET COUNT DECREASED [None]
